FAERS Safety Report 8490083-4 (Version None)
Quarter: 2012Q3

REPORT INFORMATION
  Report Type: 
  Country: None (occurrence: None)
  Receive Date: 20120705
  Receipt Date: 20120626
  Transmission Date: 20120928
  Serious: No
  Sender: FDA-Public Use
  Company Number: US-ASTRAZENECA-2012SE29854

PATIENT
  Age: 53 Year
  Sex: Female

DRUGS (12)
  1. SEROQUEL XR [Suspect]
     Indication: DEMENTIA
     Route: 048
     Dates: start: 20120301
  2. SEROQUEL XR [Suspect]
     Route: 048
  3. SEROQUEL XR [Suspect]
     Route: 048
  4. SEROQUEL XR [Suspect]
     Indication: ATTENTION DEFICIT/HYPERACTIVITY DISORDER
     Route: 048
     Dates: start: 20120301
  5. SEROQUEL XR [Suspect]
     Route: 048
  6. SEROQUEL XR [Suspect]
     Route: 048
  7. SEROQUEL XR [Suspect]
     Route: 048
  8. SEROQUEL XR [Suspect]
     Route: 048
  9. SEROQUEL XR [Suspect]
     Indication: CEREBRAL HAEMORRHAGE
     Route: 048
     Dates: start: 20120301
  10. SEROQUEL XR [Suspect]
     Route: 048
  11. SEROQUEL XR [Suspect]
     Indication: SLEEP DISORDER
     Route: 048
     Dates: start: 20120301
  12. SEROQUEL XR [Suspect]
     Route: 048

REACTIONS (3)
  - INSOMNIA [None]
  - DRUG RESISTANCE [None]
  - OFF LABEL USE [None]
